FAERS Safety Report 5968385-2 (Version None)
Quarter: 2008Q4

REPORT INFORMATION
  Report Type: 
  Country: None (occurrence: None)
  Receive Date: 20081121
  Receipt Date: 20081121
  Transmission Date: 20090506
  Serious: Yes (Hospitalization)
  Sender: FDA-Public Use
  Company Number: None

PATIENT
  Age: 46 Year
  Sex: Male
  Weight: 63.5036 kg

DRUGS (1)
  1. NEURONTIN [Suspect]
     Indication: SCIATICA
     Dates: start: 20020101, end: 20020301

REACTIONS (12)
  - AMNESIA [None]
  - ANGER [None]
  - DEPRESSION [None]
  - HOMELESS [None]
  - HOSTILITY [None]
  - INSOMNIA [None]
  - MENTAL DISORDER [None]
  - PARANOIA [None]
  - PARTNER STRESS [None]
  - SUICIDAL IDEATION [None]
  - SUICIDE ATTEMPT [None]
  - TACHYPHRENIA [None]
